FAERS Safety Report 6128121-6 (Version None)
Quarter: 2009Q1

REPORT INFORMATION
  Report Type: 
  Country: None (occurrence: None)
  Receive Date: 20090320
  Receipt Date: 20090320
  Transmission Date: 20090719
  Serious: Yes (Other)
  Sender: FDA-Public Use
  Company Number: None

PATIENT
  Age: 56 Year
  Sex: Female
  Weight: 89.8122 kg

DRUGS (1)
  1. ERY-TAB [Suspect]
     Indication: GINGIVAL ABSCESS
     Dosage: 2 TABS FIRST, 1 TAB TILL GONE 6 HOURS PO
     Route: 048
     Dates: start: 20090317, end: 20090318

REACTIONS (11)
  - ABDOMINAL PAIN UPPER [None]
  - ANOREXIA [None]
  - DIZZINESS [None]
  - FLATULENCE [None]
  - GAIT DISTURBANCE [None]
  - GASTROINTESTINAL PAIN [None]
  - NAUSEA [None]
  - PAIN [None]
  - PYREXIA [None]
  - VISION BLURRED [None]
  - VOMITING [None]
